FAERS Safety Report 4820800-3 (Version None)
Quarter: 2005Q4

REPORT INFORMATION
  Report Type: 
  Country: None (occurrence: None)
  Receive Date: 20051104
  Receipt Date: 20051026
  Transmission Date: 20060501
  Serious: Yes (Hospitalization, Disabling, Other)
  Sender: FDA-Public Use
  Company Number: US-JNJFOC-20040505583

PATIENT
  Age: 66 Year
  Sex: Male

DRUGS (9)
  1. DURAGESIC-100 [Suspect]
     Dosage: USED BOTH 50 UG/HR PATCHES AND 100 UG/HR PATCHES
     Route: 062
  2. LORTAB [Suspect]
     Route: 048
  3. LORTAB [Suspect]
     Indication: PAIN
     Route: 048
  4. AMITRIPTYLINE HCL [Concomitant]
     Indication: SLEEP DISORDER THERAPY
  5. ZESTRIL [Concomitant]
     Indication: HYPERTENSION
     Route: 048
  6. PAXIL [Concomitant]
     Indication: DEPRESSION
     Route: 048
  7. NEURONTIN [Concomitant]
     Indication: PAIN
     Route: 048
  8. ASPIRIN [Concomitant]
     Route: 048
  9. DILANTIN [Concomitant]

REACTIONS (4)
  - AMNESIA [None]
  - COMA [None]
  - DYSPHEMIA [None]
  - TRANSIENT ISCHAEMIC ATTACK [None]
